FAERS Safety Report 25493033 (Version 1)
Quarter: 2025Q2

REPORT INFORMATION
  Report Type: Spontaneous
  Country: US (occurrence: US)
  Receive Date: 20250630
  Receipt Date: 20250630
  Transmission Date: 20250717
  Serious: No
  Sender: UCB
  Company Number: US-UCBSA-2024037342

PATIENT
  Sex: Female

DRUGS (3)
  1. NAYZILAM [Suspect]
     Active Substance: MIDAZOLAM
     Indication: General symptom
  2. NAYZILAM [Suspect]
     Active Substance: MIDAZOLAM
     Indication: Off label use
  3. KLONOPIN [Concomitant]
     Active Substance: CLONAZEPAM
     Indication: General symptom

REACTIONS (1)
  - No adverse event [Unknown]
